FAERS Safety Report 15154479 (Version 3)
Quarter: 2018Q4

REPORT INFORMATION
  Report Type: Spontaneous
  Country: US (occurrence: US)
  Receive Date: 20180717
  Receipt Date: 20181106
  Transmission Date: 20190204
  Serious: No
  Sender: FDA-Public Use
  Company Number: US-PFIZER INC-2018285441

PATIENT
  Age: 43 Year
  Sex: Female
  Weight: 47 kg

DRUGS (13)
  1. FENTANYL. [Concomitant]
     Active Substance: FENTANYL
     Indication: PAIN
     Dosage: 2 DF
     Route: 061
  2. LYRICA [Suspect]
     Active Substance: PREGABALIN
     Indication: SCIATICA
     Dosage: 75 MG, 3X/DAY
     Route: 048
  3. LYRICA [Suspect]
     Active Substance: PREGABALIN
     Indication: BACK PAIN
  4. LYRICA [Suspect]
     Active Substance: PREGABALIN
     Indication: NEUROPATHY PERIPHERAL
     Dosage: 50 MG, 1X/DAY
  5. NAPROXEN. [Concomitant]
     Active Substance: NAPROXEN
     Indication: INFLAMMATION
  6. LYRICA [Suspect]
     Active Substance: PREGABALIN
     Indication: SPINAL CORD INJURY
     Dosage: 150 MG, 1X/DAY
  7. BACLOFEN. [Concomitant]
     Active Substance: BACLOFEN
     Indication: PAIN
     Dosage: 10 MG, 1-2 TABLETS 3X/DAY, AS NEEDED
     Route: 048
     Dates: start: 2005
  8. NAPROXEN. [Concomitant]
     Active Substance: NAPROXEN
     Indication: PAIN
     Dosage: 500 MG, 2X/DAY
     Route: 048
     Dates: start: 2003
  9. DENTA 5000 PLUS [Concomitant]
     Active Substance: SODIUM FLUORIDE
     Indication: DENTAL FLUORIDE THERAPY
     Dosage: BRUSH IT ON AND SPIT AS MUCH OUT AS SHE CAN , 2X/DAY
  10. LYRICA [Suspect]
     Active Substance: PREGABALIN
     Indication: PAIN
     Dosage: 50 MG, 2X/DAY
     Route: 048
  11. TRAMADOL. [Concomitant]
     Active Substance: TRAMADOL
     Indication: PAIN
     Dosage: 50 MG, AS NEEDED
  12. BACLOFEN. [Concomitant]
     Active Substance: BACLOFEN
     Indication: MUSCLE SPASMS
  13. CICLOPIROX. [Concomitant]
     Active Substance: CICLOPIROX
     Indication: LIMB INJURY
     Dosage: UNK
     Dates: start: 20180628

REACTIONS (16)
  - Intentional product misuse [Unknown]
  - Hyperhidrosis [Unknown]
  - Depression [Unknown]
  - Impaired driving ability [Unknown]
  - Hot flush [Unknown]
  - Pain [Not Recovered/Not Resolved]
  - Insomnia [Unknown]
  - Night sweats [Unknown]
  - Constipation [Unknown]
  - Burning sensation [Unknown]
  - Restlessness [Unknown]
  - Product use issue [Unknown]
  - Withdrawal syndrome [Unknown]
  - Vision blurred [Unknown]
  - Hypoaesthesia [Unknown]
  - Lactose intolerance [Unknown]

NARRATIVE: CASE EVENT DATE: 201806
